FAERS Safety Report 17846469 (Version 7)
Quarter: 2023Q1

REPORT INFORMATION
  Report Type: Report from Study
  Country: US (occurrence: US)
  Receive Date: 20200601
  Receipt Date: 20230216
  Transmission Date: 20230417
  Serious: Yes (Hospitalization, Other)
  Sender: FDA-Public Use
  Company Number: US-SHIRE-US202017924

PATIENT
  Age: 53 Year
  Sex: Male

DRUGS (5)
  1. HEMOFIL [Suspect]
     Active Substance: ANTIHEMOPHILIC FACTOR HUMAN
     Indication: Product used for unknown indication
     Dosage: UNK
     Route: 042
  2. HEMOFIL [Suspect]
     Active Substance: ANTIHEMOPHILIC FACTOR HUMAN
     Dosage: 1810 INTERNATIONAL UNIT
     Route: 065
  3. HEMOFIL [Suspect]
     Active Substance: ANTIHEMOPHILIC FACTOR HUMAN
     Dosage: 2000 INTERNATIONAL UNIT
     Route: 065
  4. HEMOFIL [Suspect]
     Active Substance: ANTIHEMOPHILIC FACTOR HUMAN
     Dosage: 2000 INTERNATIONAL UNIT
     Route: 042
  5. HEMOFIL [Suspect]
     Active Substance: ANTIHEMOPHILIC FACTOR HUMAN
     Dosage: 4000 INTERNATIONAL UNIT
     Route: 065

REACTIONS (9)
  - Ocular hyperaemia [Unknown]
  - Haematuria [Unknown]
  - Post procedural haematuria [Unknown]
  - Haemarthrosis [Recovered/Resolved]
  - Bladder discomfort [Recovered/Resolved]
  - Lethargy [Unknown]
  - Pallor [Unknown]
  - Muscle contractions involuntary [Unknown]
  - Arthralgia [Unknown]

NARRATIVE: CASE EVENT DATE: 20200430
